FAERS Safety Report 20671008 (Version 1)
Quarter: 2022Q2

REPORT INFORMATION
  Report Type: Spontaneous
  Country: US (occurrence: US)
  Receive Date: 20220404
  Receipt Date: 20220404
  Transmission Date: 20220721
  Serious: No
  Sender: FDA-Public Use
  Company Number: US-PFIZER INC-202101039928

PATIENT
  Age: 59 Year
  Sex: Female

DRUGS (10)
  1. IBRANCE [Suspect]
     Active Substance: PALBOCICLIB
     Indication: Breast cancer female
     Dosage: 125 MG, CYCLIC (DAILY 21 DAYS)
     Route: 048
     Dates: start: 201708
  2. ADVIL [Concomitant]
     Active Substance: IBUPROFEN
     Dosage: 200 MG
  3. ALEVE [Concomitant]
     Active Substance: NAPROXEN SODIUM
     Dosage: 220 MG
  4. LETROZOLE [Concomitant]
     Active Substance: LETROZOLE
     Dosage: 2.5 MG
  5. CALCIUM [Concomitant]
     Active Substance: CALCIUM
     Dosage: 600 MG
  6. VITAMIN D3 [Concomitant]
     Active Substance: CHOLECALCIFEROL
     Dosage: 1250 UG
  7. JOINT HEALTH PLUS [Concomitant]
     Dosage: 40-10-5MG TABLET
  8. FISH OIL [COD-LIVER OIL] [Concomitant]
     Dosage: 100-150MG
  9. XGEVA [Concomitant]
     Active Substance: DENOSUMAB
     Dosage: 120 MG/1.7 VIAL
  10. VITAMIN B12 [Concomitant]
     Active Substance: CYANOCOBALAMIN
     Dosage: 1000 UG

REACTIONS (1)
  - Blood test abnormal [Unknown]
